FAERS Safety Report 8028476-1 (Version None)
Quarter: 2012Q1

REPORT INFORMATION
  Report Type: 
  Country: None (occurrence: None)
  Receive Date: 20120106
  Receipt Date: 20120104
  Transmission Date: 20120608
  Serious: Yes (Hospitalization, Other)
  Sender: FDA-Public Use
  Company Number: US-ABBOTT-10P-163-0671291-00

PATIENT
  Sex: Male
  Weight: 94.432 kg

DRUGS (9)
  1. CALCIUM ACETATE [Concomitant]
     Indication: PRODUCT USED FOR UNKNOWN INDICATION
  2. HUMIRA [Suspect]
     Dates: start: 20111008, end: 20111008
  3. CALCIUM CARBONATE [Concomitant]
     Indication: GASTROOESOPHAGEAL REFLUX DISEASE
  4. MULTI-VITAMIN [Concomitant]
     Indication: PRODUCT USED FOR UNKNOWN INDICATION
  5. REMICADE [Suspect]
     Indication: CROHN'S DISEASE
     Dates: start: 20000101, end: 20010101
  6. HUMIRA [Suspect]
     Indication: CROHN'S DISEASE
     Dates: start: 20081201, end: 20100618
  7. HUMIRA [Suspect]
     Dates: start: 20110826
  8. PRILOSEC [Concomitant]
     Indication: GASTROOESOPHAGEAL REFLUX DISEASE
  9. ACETAMINOPHEN [Concomitant]
     Indication: PRODUCT USED FOR UNKNOWN INDICATION

REACTIONS (14)
  - JEJUNAL STENOSIS [None]
  - INCISION SITE ABSCESS [None]
  - SKIN LESION [None]
  - ILEAL STENOSIS [None]
  - HERNIA [None]
  - PAIN [None]
  - INCISION SITE ERYTHEMA [None]
  - CROHN'S DISEASE [None]
  - COLITIS [None]
  - ERYTHEMA NODOSUM [None]
  - WOUND INFECTION FUNGAL [None]
  - INCISION SITE BLISTER [None]
  - INFECTION [None]
  - RED BLOOD CELL SEDIMENTATION RATE INCREASED [None]
